FAERS Safety Report 6115591-2 (Version None)
Quarter: 2009Q1

REPORT INFORMATION
  Report Type: 
  Country: None (occurrence: None)
  Receive Date: 20090313
  Receipt Date: 20090303
  Transmission Date: 20090719
  Serious: Yes (Life-Threatening, Hospitalization)
  Sender: FDA-Public Use
  Company Number: ZA-NOVOPROD-284411

PATIENT
  Sex: Male
  Weight: 71.3 kg

DRUGS (5)
  1. MIXTARD 30 NOVOLET HM(GE) 3.0 ML [Suspect]
     Indication: INSULIN-REQUIRING TYPE 2 DIABETES MELLITUS
     Dosage: 26 IU, QD
     Route: 058
     Dates: start: 20080904, end: 20090208
  2. MICARDIS [Concomitant]
     Indication: HYPERTENSION
     Dosage: 40 MG, QD
     Route: 048
     Dates: start: 20090130
  3. LIPITOR [Concomitant]
     Indication: HYPERCHOLESTEROLAEMIA
     Dosage: 10 MG, QD
     Route: 048
     Dates: start: 20020101
  4. DISPRIN [Concomitant]
     Indication: ANTICOAGULANT THERAPY
     Dosage: 150 MG, QD
     Route: 048
     Dates: start: 20020101
  5. ZOPIVANE [Concomitant]
     Indication: INSOMNIA
     Dosage: 7.5 MG, QD
     Route: 048
     Dates: start: 20020101

REACTIONS (1)
  - TICK-BORNE FEVER [None]
